FAERS Safety Report 8808948 (Version 1)
Quarter: 2012Q4

REPORT INFORMATION
  Report Type: 
  Country: US (occurrence: None)
  Receive Date: 20120921
  Receipt Date: 20120921
  Transmission Date: 20130627
  Serious: Yes (Other)
  Sender: FDA-Public Use
  Company Number: None

PATIENT
  Age: 33 Year
  Sex: Female
  Weight: 76.2 kg

DRUGS (1)
  1. MIRENA [Suspect]
     Indication: CONTRACEPTION
     Dosage: 52 mg, once every 5 years, intrauterine
     Route: 015
     Dates: start: 20111031

REACTIONS (2)
  - Pregnancy with contraceptive device [None]
  - Complication of device removal [None]
